FAERS Safety Report 4376238-9 (Version None)
Quarter: 2004Q2

REPORT INFORMATION
  Report Type: 
  Country: None (occurrence: None)
  Receive Date: 20040611
  Receipt Date: 20040602
  Transmission Date: 20050107
  Serious: Yes (Hospitalization)
  Sender: FDA-Public Use
  Company Number: US-MERCK-0406USA00561

PATIENT
  Age: 35 Year
  Sex: Male

DRUGS (8)
  1. CRIXIVAN [Suspect]
     Indication: HIV INFECTION
     Route: 048
  2. CRIXIVAN [Suspect]
     Indication: ACQUIRED IMMUNODEFICIENCY SYNDROME
     Route: 048
  3. LAMIVUDINE AND ZIDOVUDINE [Suspect]
     Indication: HIV INFECTION
     Route: 065
  4. LAMIVUDINE AND ZIDOVUDINE [Suspect]
     Indication: ACQUIRED IMMUNODEFICIENCY SYNDROME
     Route: 065
  5. RITONAVIR [Suspect]
     Indication: HIV INFECTION
     Route: 065
  6. RITONAVIR [Suspect]
     Indication: ACQUIRED IMMUNODEFICIENCY SYNDROME
     Route: 065
  7. STAVUDINE [Concomitant]
     Indication: HIV INFECTION
     Route: 065
  8. STAVUDINE [Concomitant]
     Indication: ACQUIRED IMMUNODEFICIENCY SYNDROME
     Route: 065

REACTIONS (9)
  - ANAEMIA [None]
  - DIARRHOEA [None]
  - HYPERBILIRUBINAEMIA [None]
  - JAUNDICE [None]
  - LEUKOPENIA [None]
  - MYCOBACTERIUM AVIUM COMPLEX INFECTION [None]
  - NAUSEA [None]
  - VOMITING [None]
  - WEIGHT INCREASED [None]
